FAERS Safety Report 19815591 (Version 1)
Quarter: 2021Q3

REPORT INFORMATION
  Report Type: Spontaneous
  Country: AU (occurrence: AU)
  Receive Date: 20210910
  Receipt Date: 20210910
  Transmission Date: 20211014
  Serious: Yes (Hospitalization)
  Sender: FDA-Public Use
  Company Number: AU-PFIZER INC-202101169061

PATIENT
  Age: 17 Year
  Sex: Male

DRUGS (2)
  1. ERYTHROMYCIN. [Suspect]
     Active Substance: ERYTHROMYCIN
     Indication: ACNE
     Dosage: 500 MG, 1X/DAY
     Route: 065
     Dates: start: 202008, end: 202010
  2. ORATANE [ISOTRETINOIN] [Suspect]
     Active Substance: TRETINOIN
     Indication: ACNE
     Dosage: 10 MG, 1X/DAY
     Route: 065
     Dates: start: 202008, end: 202010

REACTIONS (4)
  - Head discomfort [Unknown]
  - Intracranial pressure increased [Unknown]
  - Eye oedema [Unknown]
  - Headache [Unknown]

NARRATIVE: CASE EVENT DATE: 202010
